FAERS Safety Report 19744807 (Version 1)
Quarter: 2021Q3

REPORT INFORMATION
  Report Type: Spontaneous
  Country: DE (occurrence: DE)
  Receive Date: 20210825
  Receipt Date: 20210825
  Transmission Date: 20211014
  Serious: Yes (Hospitalization)
  Sender: FDA-Public Use
  Company Number: DE-MYLANLABS-2021M1054375

PATIENT
  Age: 68 Year
  Sex: Male

DRUGS (9)
  1. METFORMIN [Concomitant]
     Active Substance: METFORMIN HYDROCHLORIDE
     Dosage: UNK (0.5?0?0.5?0)
  2. PHENPROCOUMON MYLAN [Suspect]
     Active Substance: PHENPROCOUMON
     Indication: PRODUCT USED FOR UNKNOWN INDICATION
     Dosage: UNK (3 MG, NACH SCHEMA)
     Route: 065
  3. TORASEMIDE [Suspect]
     Active Substance: TORSEMIDE
     Indication: PRODUCT USED FOR UNKNOWN INDICATION
     Dosage: UNK (5 MG, 1?0.5?0?0)
  4. TILIDIN N [Concomitant]
     Active Substance: NALOXONE HYDROCHLORIDE\TILIDINE HYDROCHLORIDE
     Dosage: UNK (4/50 MG, 1?1?0?0)
  5. EISEN                              /00023501/ [Concomitant]
     Active Substance: IRON
     Dosage: UNK (100 MG, 1?0?0?0)
  6. PANTOPRAZOL                        /01263201/ [Concomitant]
     Active Substance: PANTOPRAZOLE
     Dosage: UNK (40 MG, 1?0?0?0)
  7. FOLSAEURE [Concomitant]
     Active Substance: FOLIC ACID
     Dosage: UNK (5 MG, 1?0?0?0)
  8. PROPRANOLOL [Concomitant]
     Active Substance: PROPRANOLOL HYDROCHLORIDE
     Dosage: UNK (5 MG, 1?1?1?0)
  9. SITAGLIPTIN [Concomitant]
     Active Substance: SITAGLIPTIN
     Dosage: UNK (50 MG, 1?0?1?0)

REACTIONS (5)
  - Weight bearing difficulty [Unknown]
  - Pallor [Unknown]
  - Dyspnoea exertional [Unknown]
  - General physical health deterioration [Unknown]
  - Anaemia [Unknown]
